FAERS Safety Report 5189872-3 (Version None)
Quarter: 2006Q4

REPORT INFORMATION
  Report Type: 
  Country: None (occurrence: None)
  Receive Date: 20061218
  Receipt Date: 20061204
  Transmission Date: 20070319
  Serious: Yes (Other)
  Sender: FDA-Public Use
  Company Number: 2006AP001111

PATIENT
  Sex: Female

DRUGS (1)
  1. CLOPIDOGREL [Suspect]

REACTIONS (2)
  - ASTHMA [None]
  - CONDITION AGGRAVATED [None]
